FAERS Safety Report 24535238 (Version 1)
Quarter: 2024Q4

REPORT INFORMATION
  Report Type: Other
  Country: GB (occurrence: GB)
  Receive Date: 20241022
  Receipt Date: 20241022
  Transmission Date: 20250115
  Serious: Yes (Other)
  Sender: ALNYLAM PHARMACEUTICALS
  Company Number: None

PATIENT

DRUGS (1)
  1. AMVUTTRA [Suspect]
     Active Substance: VUTRISIRAN
     Indication: Acquired ATTR amyloidosis
     Dosage: 25 MILLIGRAM, EVERY 12 WEEKS
     Route: 065

REACTIONS (1)
  - Night blindness [Unknown]

NARRATIVE: CASE EVENT DATE: 20241011
